FAERS Safety Report 9123652 (Version 1)
Quarter: 2013Q1

REPORT INFORMATION
  Report Type: Spontaneous
  Country: AR (occurrence: AR)
  Receive Date: 20130227
  Receipt Date: 20130227
  Transmission Date: 20140127
  Serious: Yes (Hospitalization)
  Sender: FDA-Public Use
  Company Number: AR-ROCHE-1189673

PATIENT
  Age: 53 Year
  Sex: Male

DRUGS (4)
  1. ZELBORAF [Suspect]
     Indication: MALIGNANT MELANOMA
     Route: 048
     Dates: start: 20130104, end: 20130206
  2. DEXAMETHASONE [Concomitant]
     Route: 065
     Dates: start: 201212, end: 20130125
  3. DEXAMETHASONE [Concomitant]
     Route: 065
     Dates: start: 20130125
  4. OMEPRAZOLE [Concomitant]
     Route: 065

REACTIONS (2)
  - Neuropathy peripheral [Recovering/Resolving]
  - Neurotoxicity [Recovering/Resolving]
